FAERS Safety Report 9350872 (Version 4)
Quarter: 2014Q2

REPORT INFORMATION
  Report Type: Spontaneous
  Country: US (occurrence: US)
  Receive Date: 20130617
  Receipt Date: 20140520
  Transmission Date: 20141212
  Serious: Yes (Hospitalization, Other)
  Sender: FDA-Public Use
  Company Number: US-ASTELLAS-2013US006240

PATIENT
  Age: 63 Year
  Sex: Male

DRUGS (4)
  1. XTANDI [Suspect]
     Indication: PROSTATE CANCER
     Route: 048
     Dates: start: 201305, end: 201402
  2. COUMADIN                           /00014802/ [Concomitant]
     Indication: THROMBOSIS
     Route: 065
  3. LUPRON [Concomitant]
     Indication: PROSTATE CANCER
     Route: 065
  4. TRAMADOL [Concomitant]
     Indication: PRODUCT USED FOR UNKNOWN INDICATION
     Route: 065

REACTIONS (2)
  - Thrombosis [Recovering/Resolving]
  - Malignant neoplasm progression [Not Recovered/Not Resolved]
